FAERS Safety Report 7033363-1 (Version None)
Quarter: 2010Q4

REPORT INFORMATION
  Report Type: 
  Country: None (occurrence: None)
  Receive Date: 20101004
  Receipt Date: 20100927
  Transmission Date: 20110411
  Serious: Yes (Disabling)
  Sender: FDA-Public Use
  Company Number: 2010MA003051

PATIENT
  Sex: Male

DRUGS (1)
  1. METOCLOPRAMIDE [Suspect]
     Indication: GASTROOESOPHAGEAL REFLUX DISEASE
     Dosage: PO
     Route: 048
     Dates: start: 20070801, end: 20090701

REACTIONS (10)
  - ABNORMAL BEHAVIOUR [None]
  - BRUXISM [None]
  - DEFORMITY [None]
  - EAR PAIN [None]
  - ECONOMIC PROBLEM [None]
  - HEADACHE [None]
  - INJURY [None]
  - MENTAL DISORDER [None]
  - PAIN [None]
  - TARDIVE DYSKINESIA [None]
